FAERS Safety Report 11988231 (Version 1)
Quarter: 2016Q1

REPORT INFORMATION
  Report Type: Spontaneous
  Country: US (occurrence: US)
  Receive Date: 20160202
  Receipt Date: 20160202
  Transmission Date: 20160526
  Serious: No
  Sender: FDA-Public Use
  Company Number: US-PFIZER INC-2016056888

PATIENT
  Age: 34 Year
  Sex: Female
  Weight: 67.13 kg

DRUGS (7)
  1. NAPROXEN. [Concomitant]
     Active Substance: NAPROXEN
     Indication: PAIN
     Dosage: 500 MG, 2X/DAY
     Route: 048
  2. SOMA [Concomitant]
     Active Substance: CARISOPRODOL
     Indication: MUSCLE RELAXANT THERAPY
     Dosage: 350 MG, 3X/DAY
     Route: 048
     Dates: start: 201509
  3. VICODIN [Concomitant]
     Active Substance: ACETAMINOPHEN\HYDROCODONE BITARTRATE
     Indication: PAIN
     Dosage: [HYDROCODONE BITARTRATE 7.5MG]/[ PARACETAMOL 300MG],4X/DAY
     Route: 048
     Dates: start: 20140618
  4. DEPO-PROVERA [Concomitant]
     Active Substance: MEDROXYPROGESTERONE ACETATE
     Indication: ENDOMETRIOSIS
     Dosage: 150 MG, EVERY 3 MTHS
     Dates: start: 201208
  5. LYRICA [Suspect]
     Active Substance: PREGABALIN
     Indication: NEURALGIA
     Dosage: 75 MG, 2X/DAY
     Dates: start: 201601
  6. NAPROXEN. [Concomitant]
     Active Substance: NAPROXEN
     Dosage: TAKES IT AS NEEDED
  7. IBUPROFEN. [Concomitant]
     Active Substance: IBUPROFEN
     Indication: PAIN
     Dosage: 200MG THREE TWO-THREE TIMES A DAY AS NEEDED
     Dates: start: 201401

REACTIONS (5)
  - Pre-existing condition improved [Unknown]
  - Increased appetite [Recovering/Resolving]
  - Drug effect incomplete [Unknown]
  - Fatigue [Recovering/Resolving]
  - Therapeutic response unexpected [Unknown]

NARRATIVE: CASE EVENT DATE: 201601
